FAERS Safety Report 4802206-6 (Version None)
Quarter: 2005Q4

REPORT INFORMATION
  Report Type: 
  Country: None (occurrence: None)
  Receive Date: 20051012
  Receipt Date: 20050928
  Transmission Date: 20060501
  Serious: Yes (Hospitalization, Other)
  Sender: FDA-Public Use
  Company Number: 2005BI018160

PATIENT
  Age: 39 Year
  Sex: Male
  Weight: 110.2241 kg

DRUGS (2)
  1. AVONEX [Suspect]
     Indication: MULTIPLE SCLEROSIS
     Dosage: 30 UG;QW;IM
     Route: 030
     Dates: start: 19980101, end: 20040601
  2. AVONEX [Suspect]
     Indication: MULTIPLE SCLEROSIS
     Dosage: 30 UG;QW;IM
     Route: 030
     Dates: start: 20050201

REACTIONS (12)
  - ANXIETY [None]
  - BLINDNESS UNILATERAL [None]
  - BLOOD CHOLESTEROL INCREASED [None]
  - BODY HEIGHT DECREASED [None]
  - CONVULSION [None]
  - DEPRESSION [None]
  - DYSSTASIA [None]
  - HYPERTENSION [None]
  - OPTIC NEURITIS [None]
  - PAIN [None]
  - PANIC ATTACK [None]
  - TREMOR [None]
